FAERS Safety Report 13512298 (Version 1)
Quarter: 2017Q2

REPORT INFORMATION
  Report Type: Spontaneous
  Country: US (occurrence: US)
  Receive Date: 20170504
  Receipt Date: 20170504
  Transmission Date: 20170830
  Serious: Yes (Disabling)
  Sender: FDA-Public Use
  Company Number: None

PATIENT
  Age: 73 Year
  Sex: Female
  Weight: 59.85 kg

DRUGS (7)
  1. METOPROLOL. [Concomitant]
     Active Substance: METOPROLOL
  2. ASPIRIN. [Concomitant]
     Active Substance: ASPIRIN
  3. OMEPRAZOLE. [Concomitant]
     Active Substance: OMEPRAZOLE
  4. VIRTUSSIN AC [Suspect]
     Active Substance: CODEINE PHOSPHATE\GUAIFENESIN
     Indication: COUGH
     Dosage: ?          QUANTITY:2 TEASPOON(S);?
     Route: 048
     Dates: start: 20170410, end: 20170413
  5. FIBER [Concomitant]
     Active Substance: PSYLLIUM HUSK
  6. SIMVASTIN [Concomitant]
     Active Substance: SIMVASTATIN
  7. STOOL SOFTNER [Concomitant]

REACTIONS (4)
  - Hallucination [None]
  - Feeling abnormal [None]
  - Mood swings [None]
  - Heart rate increased [None]

NARRATIVE: CASE EVENT DATE: 20170411
